FAERS Safety Report 5120326-6 (Version None)
Quarter: 2006Q4

REPORT INFORMATION
  Report Type: 
  Country: None (occurrence: None)
  Receive Date: 20061002
  Receipt Date: 20061002
  Transmission Date: 20070319
  Serious: Yes (Hospitalization)
  Sender: FDA-Public Use
  Company Number: None

PATIENT
  Age: 65 Year
  Sex: Female
  Weight: 58.6 kg

DRUGS (7)
  1. ERBITUX [Suspect]
     Indication: TONSIL CANCER
     Dosage: WEEKLY IV
     Route: 042
  2. SOMA [Concomitant]
  3. DYAZUDE [Concomitant]
  4. DALMANE [Concomitant]
  5. K-DUR 10 [Concomitant]
  6. PREMARIN [Concomitant]
  7. SYNTHROID [Concomitant]

REACTIONS (5)
  - DERMATITIS ACNEIFORM [None]
  - MUCOSAL INFLAMMATION [None]
  - NASOPHARYNGEAL DISORDER [None]
  - OESOPHAGITIS [None]
  - PYREXIA [None]
